FAERS Safety Report 4338549-2 (Version None)
Quarter: 2004Q2

REPORT INFORMATION
  Report Type: 
  Country: None (occurrence: None)
  Receive Date: 20040407
  Receipt Date: 20040326
  Transmission Date: 20050107
  Serious: Yes (Other)
  Sender: FDA-Public Use
  Company Number: 2004021523

PATIENT
  Sex: Female

DRUGS (1)
  1. CYCLOKAPRON (TRANEXAMIC ACID) [Suspect]
     Indication: MENORRHAGIA
     Dosage: 1-4 TABS QD, ORAL
     Route: 048

REACTIONS (4)
  - ARTERIAL SPASM [None]
  - EMBOLISM [None]
  - MIGRAINE [None]
  - VISUAL DISTURBANCE [None]
